FAERS Safety Report 25181383 (Version 1)
Quarter: 2025Q2

REPORT INFORMATION
  Report Type: Spontaneous
  Country: US (occurrence: US)
  Receive Date: 20250410
  Receipt Date: 20250410
  Transmission Date: 20250716
  Serious: Yes (Hospitalization, Other)
  Sender: AMGEN
  Company Number: US-AMGEN-USASP2025065659

PATIENT
  Age: 74 Year
  Sex: Male

DRUGS (1)
  1. EPOETIN ALFA [Suspect]
     Active Substance: ERYTHROPOIETIN
     Indication: Nephrogenic anaemia
     Dosage: 18000 INTERNATIONAL UNIT, QWK
     Route: 040

REACTIONS (7)
  - Transient ischaemic attack [Unknown]
  - Carotid artery stenosis [Unknown]
  - Iron deficiency anaemia [Unknown]
  - Prostatic disorder [Unknown]
  - Inflammation [Unknown]
  - Hyperparathyroidism secondary [Unknown]
  - Drug resistance [Unknown]
